FAERS Safety Report 5445086-0 (Version None)
Quarter: 2007Q3

REPORT INFORMATION
  Report Type: 
  Country: None (occurrence: None)
  Receive Date: 20070906
  Receipt Date: 20070829
  Transmission Date: 20080115
  Serious: Yes (Other)
  Sender: FDA-Public Use
  Company Number: GB-PURDUE-GBR_2007_0003217

PATIENT
  Age: 34 Year
  Sex: Female
  Weight: 70 kg

DRUGS (2)
  1. THEOPHYLLINE [Suspect]
     Indication: NASOPHARYNGITIS
     Dosage: 1 DF, BID
     Route: 048
     Dates: start: 20070807, end: 20070807
  2. BENYLIN ADULT [Concomitant]
     Indication: COUGH
     Dosage: UNK, UNK
     Route: 065
     Dates: start: 20070803, end: 20070806

REACTIONS (7)
  - COLD SWEAT [None]
  - DRY MOUTH [None]
  - HYPERHIDROSIS [None]
  - INSOMNIA [None]
  - MALAISE [None]
  - NAUSEA [None]
  - PALPITATIONS [None]
